FAERS Safety Report 4308814-3 (Version None)
Quarter: 2004Q1

REPORT INFORMATION
  Report Type: 
  Country: None (occurrence: None)
  Receive Date: 20040301
  Receipt Date: 20040301
  Transmission Date: 20041129
  Serious: Yes (Hospitalization)
  Sender: FDA-Public Use
  Company Number: None

PATIENT
  Age: 58 Year
  Sex: Female
  Weight: 88.6 kg

DRUGS (6)
  1. LITHIUM 28:28 [Suspect]
     Indication: BIPOLAR DISORDER
     Dosage: 150 MG QD
     Dates: start: 19960101
  2. ESKALITH CR [Suspect]
     Dosage: 450 MG PO BID
     Route: 048
  3. IMIPRAMINE [Concomitant]
  4. NASACORT [Concomitant]
  5. CLOZAPINE [Concomitant]
  6. MULTI-VITAMINS [Concomitant]

REACTIONS (5)
  - ASTHENIA [None]
  - DROOLING [None]
  - FACIAL PALSY [None]
  - MEDICATION ERROR [None]
  - PAIN [None]
